FAERS Safety Report 13507662 (Version 1)
Quarter: 2017Q2

REPORT INFORMATION
  Report Type: Spontaneous
  Country: US (occurrence: US)
  Receive Date: 20170503
  Receipt Date: 20170503
  Transmission Date: 20170830
  Serious: Yes (Death)
  Sender: FDA-Public Use
  Company Number: None

PATIENT
  Age: 65 Year
  Sex: Female
  Weight: 90 kg

DRUGS (1)
  1. GEMZAR [Suspect]
     Active Substance: GEMCITABINE HYDROCHLORIDE
     Indication: NEOPLASM MALIGNANT
     Dosage: QUANTITY:1 2000 MG;?
     Route: 042
     Dates: start: 20160901, end: 20170303

REACTIONS (4)
  - Pneumonia [None]
  - Renal failure [None]
  - Respiratory failure [None]
  - Acute respiratory distress syndrome [None]

NARRATIVE: CASE EVENT DATE: 20170303
